FAERS Safety Report 9162515 (Version 1)
Quarter: 2013Q1

REPORT INFORMATION
  Report Type: Spontaneous
  Country: MX (occurrence: MX)
  Receive Date: 20130314
  Receipt Date: 20130314
  Transmission Date: 20140127
  Serious: Yes (Other)
  Sender: FDA-Public Use
  Company Number: MX-ELI_LILLY_AND_COMPANY-MX201303002513

PATIENT
  Sex: Male

DRUGS (2)
  1. PROZAC [Suspect]
     Indication: PANIC ATTACK
     Dosage: 1 DF, UNK
     Dates: start: 1993
  2. PROZAC [Suspect]
     Dosage: 3 DF, UNK

REACTIONS (5)
  - Arthritis [Unknown]
  - Abnormal behaviour [Recovered/Resolved]
  - Abnormal behaviour [Unknown]
  - Stress [Unknown]
  - Drug ineffective [Unknown]
